FAERS Safety Report 17568420 (Version 1)
Quarter: 2020Q1

REPORT INFORMATION
  Report Type: Report from Study
  Country: None (occurrence: US)
  Receive Date: 20200321
  Receipt Date: 20200321
  Transmission Date: 20200409
  Serious: Yes (Other)
  Sender: FDA-Public Use
  Company Number: US-ABBVIE-19K-163-3199772-00

PATIENT
  Age: 44 Year
  Sex: Male

DRUGS (4)
  1. HUMIRA [Suspect]
     Active Substance: ADALIMUMAB
     Dosage: DAY 15
     Route: 058
     Dates: start: 20191210, end: 20191210
  2. HUMIRA [Suspect]
     Active Substance: ADALIMUMAB
     Indication: CROHN^S DISEASE
     Route: 058
     Dates: start: 20191224, end: 2020
  3. HUMIRA [Suspect]
     Active Substance: ADALIMUMAB
     Route: 058
     Dates: start: 2020
  4. HUMIRA [Suspect]
     Active Substance: ADALIMUMAB
     Indication: CROHN^S DISEASE
     Dosage: DAY 1
     Route: 058
     Dates: start: 20191126, end: 20191126

REACTIONS (32)
  - Oropharyngeal pain [Not Recovered/Not Resolved]
  - Headache [Unknown]
  - Food allergy [Unknown]
  - Malaise [Not Recovered/Not Resolved]
  - Nasal congestion [Not Recovered/Not Resolved]
  - Cough [Recovered/Resolved]
  - Diarrhoea [Not Recovered/Not Resolved]
  - Conjunctivitis [Unknown]
  - Therapeutic response shortened [Not Recovered/Not Resolved]
  - Injection site pruritus [Not Recovered/Not Resolved]
  - Insomnia [Not Recovered/Not Resolved]
  - Dyspnoea [Not Recovered/Not Resolved]
  - Dyspepsia [Not Recovered/Not Resolved]
  - Visual impairment [Unknown]
  - Sinus congestion [Unknown]
  - Injection site pain [Not Recovered/Not Resolved]
  - Fear [Not Recovered/Not Resolved]
  - Depressed mood [Not Recovered/Not Resolved]
  - Colostomy [Unknown]
  - Pain [Unknown]
  - Fatigue [Unknown]
  - Nausea [Unknown]
  - Fatigue [Recovered/Resolved]
  - Cough [Unknown]
  - Device issue [Unknown]
  - Headache [Unknown]
  - Anxiety [Not Recovered/Not Resolved]
  - Loss of personal independence in daily activities [Not Recovered/Not Resolved]
  - Injection site pruritus [Recovered/Resolved]
  - Abdominal pain upper [Not Recovered/Not Resolved]
  - Influenza [Recovered/Resolved]
  - Pyrexia [Recovered/Resolved]

NARRATIVE: CASE EVENT DATE: 2019
